FAERS Safety Report 9699374 (Version 2)
Quarter: 2013Q4

REPORT INFORMATION
  Report Type: Spontaneous
  Country: US (occurrence: US)
  Receive Date: 20131120
  Receipt Date: 20131120
  Transmission Date: 20140711
  Serious: Yes (Other)
  Sender: FDA-Public Use
  Company Number: US-TEVA-361789USA

PATIENT
  Age: 32 Year
  Sex: Female
  Weight: 59.02 kg

DRUGS (6)
  1. PARAGARD 380A [Suspect]
     Indication: CONTRACEPTION
     Route: 015
     Dates: start: 20120802, end: 20120913
  2. ZYRTEC [Concomitant]
     Indication: HYPERSENSITIVITY
  3. CYMBALTA [Concomitant]
     Indication: NEUROPATHY PERIPHERAL
  4. SYNTHROID [Concomitant]
     Indication: THYROID CANCER
  5. PEPCID [Concomitant]
     Indication: GASTROOESOPHAGEAL REFLUX DISEASE
  6. CALCIUM [Concomitant]
     Indication: PARATHYROID DISORDER

REACTIONS (2)
  - Uterine perforation [Unknown]
  - Embedded device [Recovered/Resolved]
